FAERS Safety Report 22893479 (Version 4)
Quarter: 2023Q4

REPORT INFORMATION
  Report Type: Other
  Country: GB (occurrence: None)
  Receive Date: 20230901
  Receipt Date: 20231127
  Transmission Date: 20240110
  Serious: Yes (Other)
  Sender: FDA-Public Use
  Company Number: GB-ROCHE-3413391

PATIENT
  Age: 54 Year
  Sex: Male
  Weight: 68 kg

DRUGS (1)
  1. EMICIZUMAB [Suspect]
     Active Substance: EMICIZUMAB
     Indication: Factor VIII deficiency
     Dosage: 3 DOSES TOTAL GIVEN OF 210 MG
     Route: 065
     Dates: start: 2021

REACTIONS (3)
  - Thrombosis [Recovered/Resolved]
  - Renal infarct [Recovered/Resolved]
  - Fibromuscular dysplasia [Unknown]

NARRATIVE: CASE EVENT DATE: 20211203
